FAERS Safety Report 10175993 (Version 1)
Quarter: 2014Q2

REPORT INFORMATION
  Report Type: Spontaneous
  Country: CA (occurrence: CA)
  Receive Date: 20140516
  Receipt Date: 20140516
  Transmission Date: 20141212
  Serious: Yes (Other)
  Sender: FDA-Public Use
  Company Number: CA-NAPPMUNDI-CAN-2014-0004891

PATIENT
  Age: 23 Year
  Sex: Male

DRUGS (3)
  1. DILAUDID [Suspect]
     Indication: PRODUCT USED FOR UNKNOWN INDICATION
     Dosage: UNK
  2. HYDROMORPHONE HCL [Suspect]
     Indication: PRODUCT USED FOR UNKNOWN INDICATION
     Dosage: UNK
     Route: 065
  3. DRUGS [Suspect]
     Indication: PRODUCT USED FOR UNKNOWN INDICATION
     Dosage: UNK
     Route: 065

REACTIONS (9)
  - Polysubstance dependence [Unknown]
  - Substance abuse [Unknown]
  - Self injurious behaviour [Unknown]
  - Weight decreased [Unknown]
  - General physical health deterioration [Unknown]
  - Skin discolouration [Unknown]
  - Aggression [Unknown]
  - Personality change [Unknown]
  - Drug diversion [Unknown]
